FAERS Safety Report 25788146 (Version 2)
Quarter: 2025Q3

REPORT INFORMATION
  Report Type: Spontaneous
  Country: EU (occurrence: EU)
  Receive Date: 20250910
  Receipt Date: 20250922
  Transmission Date: 20251021
  Serious: Yes (Death, Other)
  Sender: INCYTE
  Company Number: EU-002147023-NVSC2025BG141020

PATIENT
  Age: 75 Year

DRUGS (2)
  1. RUXOLITINIB [Suspect]
     Active Substance: RUXOLITINIB
     Indication: Myelofibrosis
  2. RUXOLITINIB [Suspect]
     Active Substance: RUXOLITINIB

REACTIONS (1)
  - Thrombocytopenia [Fatal]
